FAERS Safety Report 9277864 (Version 3)
Quarter: 2013Q3

REPORT INFORMATION
  Report Type: Spontaneous
  Country: US (occurrence: US)
  Receive Date: 20130508
  Receipt Date: 20130812
  Transmission Date: 20140515
  Serious: No
  Sender: FDA-Public Use
  Company Number: US-BIOGENIDEC-2013BI040226

PATIENT
  Age: 50 Year
  Sex: Female

DRUGS (3)
  1. TYSABRI [Suspect]
     Indication: MULTIPLE SCLEROSIS
     Route: 042
     Dates: start: 20120517
  2. AVONEX [Concomitant]
     Indication: MULTIPLE SCLEROSIS
     Route: 030
  3. AVONEX [Concomitant]
     Indication: MULTIPLE SCLEROSIS
     Route: 030

REACTIONS (9)
  - Vulvovaginal swelling [Unknown]
  - Vulvovaginal mycotic infection [Unknown]
  - Liver disorder [Unknown]
  - Pain [Recovered/Resolved]
  - Infusion site pain [Not Recovered/Not Resolved]
  - Pollakiuria [Unknown]
  - Cystitis [Recovered/Resolved]
  - Hepatic enzyme increased [Not Recovered/Not Resolved]
  - Chills [Recovered/Resolved]
